FAERS Safety Report 7306473-9 (Version None)
Quarter: 2011Q1

REPORT INFORMATION
  Report Type: 
  Country: None (occurrence: None)
  Receive Date: 20110222
  Receipt Date: 20110215
  Transmission Date: 20110831
  Serious: Yes (Hospitalization)
  Sender: FDA-Public Use
  Company Number: US-ABBOTT-11P-163-0697672-00

PATIENT
  Sex: Female
  Weight: 81.72 kg

DRUGS (21)
  1. ALBUTEROL [Concomitant]
     Indication: DYSPNOEA
     Dosage: NEBULIZER
  2. TRAMADOL HCL [Concomitant]
     Indication: ARTHRALGIA
  3. ADVAIR DISKUS 100/50 [Concomitant]
     Indication: CHRONIC OBSTRUCTIVE PULMONARY DISEASE
  4. ACIPHEX [Concomitant]
     Indication: GASTROOESOPHAGEAL REFLUX DISEASE
  5. POTASSIUM [Concomitant]
     Indication: MINERAL SUPPLEMENTATION
  6. METFORMIN HCL [Concomitant]
     Indication: GLUCOSE TOLERANCE IMPAIRED
  7. PREDNISONE [Concomitant]
  8. XOPENEX [Concomitant]
     Indication: CHRONIC OBSTRUCTIVE PULMONARY DISEASE
  9. CITALOPRAM HYDROBROMIDE [Concomitant]
     Indication: DEPRESSION
  10. METOPROLOL [Concomitant]
     Indication: HYPERTENSION
  11. PROMETHAZINE [Concomitant]
     Indication: NAUSEA
  12. PLAVIX [Concomitant]
     Indication: PRODUCT USED FOR UNKNOWN INDICATION
  13. GLIPIZIDE [Concomitant]
     Indication: GLUCOSE TOLERANCE IMPAIRED
  14. PREDNISONE [Concomitant]
     Indication: RHEUMATOID ARTHRITIS
     Dates: start: 20101201
  15. HUMIRA [Suspect]
     Indication: RHEUMATOID ARTHRITIS
     Dates: end: 20100601
  16. LIPITOR [Concomitant]
     Indication: BLOOD CHOLESTEROL INCREASED
  17. LISINOPRIL [Concomitant]
     Indication: HYPERTENSION
  18. HUMIRA [Suspect]
     Dates: start: 20110115
  19. FLUOXETINE [Concomitant]
     Indication: ANXIETY
  20. SPIRIVA [Concomitant]
     Indication: DYSPNOEA
  21. ACCUPRIL [Concomitant]
     Indication: HYPERTENSION

REACTIONS (13)
  - CHEST PAIN [None]
  - FLUID RETENTION [None]
  - JOINT STIFFNESS [None]
  - ARTHRALGIA [None]
  - GASTROOESOPHAGEAL REFLUX DISEASE [None]
  - DIARRHOEA [None]
  - JOINT SWELLING [None]
  - PARANASAL SINUS HYPERSECRETION [None]
  - COUGH [None]
  - GOUT [None]
  - PYREXIA [None]
  - VOMITING [None]
  - GASTRIC DISORDER [None]
